FAERS Safety Report 15188002 (Version 1)
Quarter: 2018Q3

REPORT INFORMATION
  Report Type: Other
  Country: JP (occurrence: JP)
  Receive Date: 20180724
  Receipt Date: 20180724
  Transmission Date: 20181010
  Serious: Yes (Death, Hospitalization)
  Sender: FDA-Public Use
  Company Number: JP-ACTELION-A-CH2018-175517

PATIENT
  Age: 18 Month
  Sex: Male

DRUGS (5)
  1. OXYGEN. [Concomitant]
     Active Substance: OXYGEN
  2. BERAPROST [Concomitant]
     Active Substance: BERAPROST
  3. NITRIC OXIDE. [Concomitant]
     Active Substance: NITRIC OXIDE
  4. BOSENTAN. [Suspect]
     Active Substance: BOSENTAN
     Indication: PULMONARY HYPERTENSION
     Route: 048
  5. TADALAFIL [Concomitant]
     Active Substance: TADALAFIL

REACTIONS (3)
  - Pulmonary hypertension [Fatal]
  - Pulmonary vein stenosis [Fatal]
  - Atrial septal defect repair [Unknown]
